FAERS Safety Report 15905758 (Version 1)
Quarter: 2019Q1

REPORT INFORMATION
  Report Type: Spontaneous
  Country: SE (occurrence: SE)
  Receive Date: 20190204
  Receipt Date: 20190204
  Transmission Date: 20190417
  Serious: Yes (Other)
  Sender: FDA-Public Use
  Company Number: SE-MYLANLABS-2019M1009963

PATIENT
  Age: 53 Year
  Sex: Female

DRUGS (9)
  1. TROMBYL [Concomitant]
     Active Substance: ASPIRIN
     Dosage: UNK
  2. OESTRING [Concomitant]
     Active Substance: ESTRADIOL
     Dosage: UNK
  3. VAGIFEM [Concomitant]
     Active Substance: ESTRADIOL
     Dosage: UNK
  4. ABACAVIR/LAMIVUDINA MYLAN 600 MG/300 MG [Suspect]
     Active Substance: ABACAVIR\LAMIVUDINE
     Indication: HIV INFECTION
     Dosage: 1 DOSAGE FORM, QD
     Route: 048
     Dates: start: 20180520, end: 20180613
  5. DIVISUN [Concomitant]
     Dosage: UNK
  6. RITALIN [Concomitant]
     Active Substance: METHYLPHENIDATE HYDROCHLORIDE
     Dosage: UNK
  7. ZOPIKLON PILUM [Concomitant]
     Dosage: UNK
  8. TIVICAY [Concomitant]
     Active Substance: DOLUTEGRAVIR SODIUM
     Dosage: UNK
     Dates: start: 20180520, end: 20180613
  9. NAPROXEN. [Concomitant]
     Active Substance: NAPROXEN
     Dosage: AS NECESSARY

REACTIONS (4)
  - Fatigue [Recovered/Resolved]
  - Nausea [Recovered/Resolved]
  - Product substitution issue [Recovered/Resolved]
  - Vomiting [Recovered/Resolved]

NARRATIVE: CASE EVENT DATE: 20180520
